FAERS Safety Report 17231584 (Version 1)
Quarter: 2020Q1

REPORT INFORMATION
  Report Type: Spontaneous
  Country: US (occurrence: US)
  Receive Date: 20200103
  Receipt Date: 20200103
  Transmission Date: 20200409
  Serious: No
  Sender: FDA-Public Use
  Company Number: US-PFIZER INC-2019561479

PATIENT

DRUGS (2)
  1. ADVIL LIQUI-GELS [Suspect]
     Active Substance: IBUPROFEN
     Dosage: 2 DF, (I TOOK 2 ADVIL LIQUI-GELS AT APPROXIMATELY 01:30)
  2. OXAPROZIN. [Interacting]
     Active Substance: OXAPROZIN
     Dosage: 600 MG, UNK

REACTIONS (2)
  - Labelled drug-drug interaction medication error [Unknown]
  - Palpitations [Unknown]
